FAERS Safety Report 9927866 (Version 1)
Quarter: 2014Q1

REPORT INFORMATION
  Report Type: Spontaneous
  Country: US (occurrence: None)
  Receive Date: 20140226
  Receipt Date: 20140226
  Transmission Date: 20141002
  Serious: Yes (Death, Life-Threatening, Hospitalization, Other)
  Sender: FDA-Public Use
  Company Number: None

PATIENT
  Age: 64 Year
  Sex: Female
  Weight: 113.4 kg

DRUGS (1)
  1. AMIODARONE [Suspect]
     Dosage: HOSPITAL/PRES. ?THREE TIMES DAILY?INTO A VEIN

REACTIONS (2)
  - Urinary tract infection [None]
  - Unevaluable event [None]
